FAERS Safety Report 8472131-0 (Version None)
Quarter: 2012Q2

REPORT INFORMATION
  Report Type: 
  Country: None (occurrence: None)
  Receive Date: 20120627
  Receipt Date: 20120620
  Transmission Date: 20120825
  Serious: Yes (Other)
  Sender: FDA-Public Use
  Company Number: FR-BRISTOL-MYERS SQUIBB COMPANY-16417891

PATIENT
  Age: 75 Year
  Sex: Female

DRUGS (5)
  1. IMOVANE [Concomitant]
  2. SULFARLEM [Concomitant]
  3. HYDREA [Suspect]
     Indication: ESSENTIAL THROMBOCYTHAEMIA
     Route: 048
     Dates: end: 20111201
  4. TENORMIN [Concomitant]
  5. LEVOTHYROXINE SODIUM [Concomitant]

REACTIONS (3)
  - MYELOFIBROSIS [None]
  - IRON DEFICIENCY [None]
  - ANAEMIA [None]
